FAERS Safety Report 4576975-7 (Version None)
Quarter: 2005Q1

REPORT INFORMATION
  Report Type: 
  Country: None (occurrence: None)
  Receive Date: 20050208
  Receipt Date: 20050124
  Transmission Date: 20050727
  Serious: Yes (Hospitalization)
  Sender: FDA-Public Use
  Company Number: 2004UW01147

PATIENT
  Age: 14 Year
  Sex: Female
  Weight: 51.7 kg

DRUGS (4)
  1. SEROQUEL [Suspect]
     Indication: ANXIETY
     Dosage: 37.5 MG DAILY PO
     Route: 048
     Dates: start: 19980101, end: 20040101
  2. SEROQUEL [Suspect]
     Indication: DEPRESSION
     Dosage: 37.5 MG DAILY PO
     Route: 048
     Dates: start: 19980101, end: 20040101
  3. SEROQUEL [Suspect]
     Indication: POST-TRAUMATIC STRESS DISORDER
     Dosage: 37.5 MG DAILY PO
     Route: 048
     Dates: start: 19980101, end: 20040101
  4. CELEXA [Concomitant]

REACTIONS (19)
  - ASTHENIA [None]
  - BETA HAEMOLYTIC STREPTOCOCCAL INFECTION [None]
  - BLOOD SODIUM DECREASED [None]
  - BRONCHITIS ACUTE [None]
  - DECREASED APPETITE [None]
  - DEHYDRATION [None]
  - DERMATITIS CONTACT [None]
  - DIABETES MELLITUS [None]
  - DIABETIC KETOACIDOSIS [None]
  - DYSPNOEA [None]
  - HYPERGLYCAEMIA [None]
  - INFECTIOUS MONONUCLEOSIS [None]
  - KETOACIDOSIS [None]
  - KETONURIA [None]
  - PHARYNGITIS [None]
  - SINUSITIS [None]
  - TACHYCARDIA [None]
  - URINARY TRACT INFECTION [None]
  - WEIGHT INCREASED [None]
